FAERS Safety Report 21358865 (Version 1)
Quarter: 2022Q3

REPORT INFORMATION
  Report Type: Spontaneous
  Country: US (occurrence: US)
  Receive Date: 20220921
  Receipt Date: 20220921
  Transmission Date: 20221027
  Serious: No
  Sender: FDA-Public Use
  Company Number: US-MICRO LABS LIMITED-ML2022-04358

PATIENT
  Sex: Female

DRUGS (2)
  1. TRAVOPROST [Suspect]
     Active Substance: TRAVOPROST
     Indication: Glaucoma
     Dosage: ONE DROP IN ONE EYE
     Route: 047
  2. TRAVOPROST [Suspect]
     Active Substance: TRAVOPROST
     Dosage: ONE DROP IN ONE EYE
     Route: 047

REACTIONS (2)
  - Eye irritation [Unknown]
  - Ocular hyperaemia [Unknown]
